FAERS Safety Report 9750383 (Version 2)
Quarter: 2014Q1

REPORT INFORMATION
  Report Type: Spontaneous
  Country: DE (occurrence: FR)
  Receive Date: 20131212
  Receipt Date: 20140219
  Transmission Date: 20141002
  Serious: Yes (Death, Hospitalization)
  Sender: FDA-Public Use
  Company Number: FR-FRI-1000052180

PATIENT
  Age: 64 Year
  Sex: Female

DRUGS (13)
  1. MEMANTINE [Suspect]
     Indication: DEMENTIA
     Dosage: 20 MG
     Route: 048
     Dates: end: 20130829
  2. PREVISCAN [Suspect]
     Indication: ATRIAL FIBRILLATION
     Dosage: QS TO MAINTAIN INR BETWEEN 2 AND 3
     Route: 048
     Dates: end: 20130829
  3. TAHOR [Suspect]
     Indication: HYPERCHOLESTEROLAEMIA
     Route: 048
     Dates: end: 20130909
  4. ARICEPT [Suspect]
     Indication: DEMENTIA
     Route: 048
     Dates: end: 20130829
  5. RISPERDAL [Suspect]
     Route: 048
     Dates: end: 20130829
  6. TAREG [Suspect]
     Indication: HYPERTENSION
     Route: 048
     Dates: end: 20130829
  7. LASILIX [Suspect]
     Indication: HYPERTENSION
     Route: 048
     Dates: end: 20130829
  8. CARDENSIEL [Suspect]
     Indication: HYPERTENSION
     Route: 048
     Dates: end: 20130829
  9. INEXIUM [Suspect]
     Route: 048
     Dates: end: 20130829
  10. LANTUS [Suspect]
     Route: 058
     Dates: end: 20130829
  11. ZYLORIC [Suspect]
     Indication: HYPERURICAEMIA
     Route: 048
     Dates: end: 20130829
  12. ATHYMIL [Suspect]
     Dates: end: 20130829
  13. NOVORAPID [Concomitant]
     Dates: end: 20130829

REACTIONS (1)
  - Subdural haematoma [Fatal]
